FAERS Safety Report 8382856 (Version 2)
Quarter: 2015Q1

REPORT INFORMATION
  Report Type: Report from Study
  Country: US (occurrence: US)
  Receive Date: 20120201
  Receipt Date: 20150226
  Transmission Date: 20150721
  Serious: Yes (Death)
  Sender: FDA-Public Use
  Company Number: US-ROCHE-1035072

PATIENT
  Sex: Female

DRUGS (14)
  1. AVASTIN [Suspect]
     Active Substance: BEVACIZUMAB
     Indication: RECTOSIGMOID CANCER
     Route: 042
     Dates: start: 20060207
  2. RITUXIMAB [Concomitant]
     Active Substance: RITUXIMAB
     Route: 065
  3. ERBITUX [Suspect]
     Active Substance: CETUXIMAB
     Indication: PRODUCT USED FOR UNKNOWN INDICATION
     Route: 042
  4. OXALIPLATIN. [Suspect]
     Active Substance: OXALIPLATIN
     Indication: PRODUCT USED FOR UNKNOWN INDICATION
     Route: 065
  5. SENOKOT [Concomitant]
     Active Substance: SENNOSIDES
  6. LEUCOVORIN [Concomitant]
     Active Substance: LEUCOVORIN
  7. AVASTIN [Suspect]
     Active Substance: BEVACIZUMAB
     Indication: ANAL CANCER
  8. KYTRIL [Concomitant]
     Active Substance: GRANISETRON HYDROCHLORIDE
     Route: 065
  9. BENADRYL [Suspect]
     Active Substance: DIPHENHYDRAMINE HYDROCHLORIDE
     Indication: PRODUCT USED FOR UNKNOWN INDICATION
     Route: 042
  10. KEFLEX [Concomitant]
     Active Substance: CEPHALEXIN
  11. DECADRON [Concomitant]
     Active Substance: DEXAMETHASONE
     Route: 065
  12. IRINOTECAN [Concomitant]
     Active Substance: IRINOTECAN
  13. 5-FLUOROCYTOSINE [Concomitant]
  14. COLACE [Concomitant]
     Active Substance: DOCUSATE SODIUM

REACTIONS (10)
  - Epistaxis [Unknown]
  - Stomatitis [Unknown]
  - Neuropathy peripheral [Unknown]
  - Carcinoembryonic antigen increased [Unknown]
  - Sedation [Unknown]
  - Rash [Unknown]
  - Death [Fatal]
  - Paronychia [Unknown]
  - Dermatitis acneiform [Unknown]
  - Alopecia [Unknown]
